FAERS Safety Report 19815879 (Version 1)
Quarter: 2021Q3

REPORT INFORMATION
  Report Type: Other
  Country: KR (occurrence: KR)
  Receive Date: 20210909
  Receipt Date: 20210909
  Transmission Date: 20211014
  Serious: Yes (Other)
  Sender: FDA-Public Use
  Company Number: KR-ROCHE-2898630

PATIENT
  Age: 78 Year
  Sex: Male

DRUGS (2)
  1. ATEZOLIZUMAB. [Suspect]
     Active Substance: ATEZOLIZUMAB
     Indication: HEPATOCELLULAR CARCINOMA
     Dosage: SUBSEQUENT THERAPIES ON: 10/NOV/2020, 01/DEC/2020, 23/DEC/2020, 15/JAN/2021, 05/FEB/2021, 02/MAR/202
     Route: 041
     Dates: start: 20201020
  2. BEVACIZUMAB. [Suspect]
     Active Substance: BEVACIZUMAB
     Indication: HEPATOCELLULAR CARCINOMA
     Dosage: ON DAY 1 OF EACH 21 DAY CYCLE?SUBSEQUENT THERAPIES ON: 10/NOV/2020, 01/DEC/2020, 23/DEC/2020, 15/JAN
     Route: 042
     Dates: start: 20201020

REACTIONS (3)
  - Duodenal ulcer [Not Recovered/Not Resolved]
  - Oesophageal ulcer [Recovered/Resolved]
  - Gastric ulcer [Recovered/Resolved]

NARRATIVE: CASE EVENT DATE: 20210528
